FAERS Safety Report 20860810 (Version 2)
Quarter: 2022Q3

REPORT INFORMATION
  Report Type: Spontaneous
  Country: LB (occurrence: LB)
  Receive Date: 20220523
  Receipt Date: 20220801
  Transmission Date: 20221026
  Serious: Yes (Death, Other)
  Sender: FDA-Public Use
  Company Number: LB-009507513-2205LBN005641

PATIENT
  Sex: Female

DRUGS (1)
  1. KEYTRUDA [Suspect]
     Active Substance: PEMBROLIZUMAB
     Dosage: UNK

REACTIONS (8)
  - Death [Fatal]
  - Infusion related hypersensitivity reaction [Unknown]
  - Suspected counterfeit product [Unknown]
  - Product availability issue [Unknown]
  - Counterfeit product administered [Unknown]
  - Product packaging quantity issue [Unknown]
  - Product container issue [Unknown]
  - Liquid product physical issue [Unknown]

NARRATIVE: CASE EVENT DATE: 20220101
